FAERS Safety Report 5369527-2 (Version None)
Quarter: 2007Q2

REPORT INFORMATION
  Report Type: 
  Country: None (occurrence: None)
  Receive Date: 20070625
  Receipt Date: 20070615
  Transmission Date: 20071010
  Serious: Yes (Disabling)
  Sender: FDA-Public Use
  Company Number: B0472647A

PATIENT
  Age: 21 Year
  Sex: Female

DRUGS (1)
  1. AUGMENTIN '125' [Suspect]
     Indication: TOOTHACHE
     Route: 048
     Dates: start: 20041111

REACTIONS (20)
  - ALANINE AMINOTRANSFERASE INCREASED [None]
  - ASPARTATE AMINOTRANSFERASE INCREASED [None]
  - BILIRUBIN CONJUGATED INCREASED [None]
  - BLOOD ALKALINE PHOSPHATASE INCREASED [None]
  - BLOOD BILIRUBIN INCREASED [None]
  - BLOOD IRON DECREASED [None]
  - BLOOD LACTATE DEHYDROGENASE INCREASED [None]
  - CHOLESTASIS [None]
  - CHRONIC HEPATITIS [None]
  - EOSINOPHIL COUNT DECREASED [None]
  - GAMMA-GLUTAMYLTRANSFERASE DECREASED [None]
  - GAMMA-GLUTAMYLTRANSFERASE INCREASED [None]
  - HAEMOGLOBIN DECREASED [None]
  - HEPATIC FIBROSIS [None]
  - IRON BINDING CAPACITY TOTAL INCREASED [None]
  - LIVER DISORDER [None]
  - MEAN CELL HAEMOGLOBIN CONCENTRATION DECREASED [None]
  - PROTHROMBIN TIME SHORTENED [None]
  - RETICULOCYTE COUNT INCREASED [None]
  - TRANSFERRIN SATURATION DECREASED [None]
